FAERS Safety Report 5376319-7 (Version None)
Quarter: 2007Q2

REPORT INFORMATION
  Report Type: 
  Country: None (occurrence: None)
  Receive Date: 20070628
  Receipt Date: 20060804
  Transmission Date: 20071010
  Serious: Yes (Hospitalization)
  Sender: FDA-Public Use
  Company Number: 146918USA

PATIENT
  Sex: Female

DRUGS (3)
  1. DILTIAZEM HYDROCHLORIDE [Suspect]
     Indication: ATRIAL FIBRILLATION
     Dosage: 120 MG (120 MG, ONCE A DAY), ORAL
     Route: 048
     Dates: start: 20050101
  2. INSULIN [Concomitant]
  3. PREDNISONE [Concomitant]

REACTIONS (3)
  - ABASIA [None]
  - ATRIAL FIBRILLATION [None]
  - OEDEMA PERIPHERAL [None]
